FAERS Safety Report 11590219 (Version 1)
Quarter: 2015Q4

REPORT INFORMATION
  Report Type: Spontaneous
  Country: US (occurrence: US)
  Receive Date: 20151002
  Receipt Date: 20151002
  Transmission Date: 20160304
  Serious: Yes (Other)
  Sender: FDA-Public Use
  Company Number: US-GILEAD-2015-0174719

PATIENT
  Sex: Male

DRUGS (2)
  1. RIBAVIRIN. [Concomitant]
     Active Substance: RIBAVIRIN
  2. HARVONI [Suspect]
     Active Substance: LEDIPASVIR\SOFOSBUVIR
     Indication: HEPATITIS C
     Dosage: UNK
     Route: 065
     Dates: end: 20150802

REACTIONS (5)
  - Drug ineffective [Unknown]
  - Pain in jaw [Not Recovered/Not Resolved]
  - Anaemia [Unknown]
  - Gingival swelling [Not Recovered/Not Resolved]
  - Gingival cyst [Not Recovered/Not Resolved]

NARRATIVE: CASE EVENT DATE: 201509
